FAERS Safety Report 5508039-X (Version None)
Quarter: 2007Q4

REPORT INFORMATION
  Report Type: 
  Country: None (occurrence: None)
  Receive Date: 20071106
  Receipt Date: 20071025
  Transmission Date: 20080405
  Serious: Yes (Other)
  Sender: FDA-Public Use
  Company Number: GB-PFIZER INC-2007090607

PATIENT
  Age: 80 Year
  Sex: Female

DRUGS (2)
  1. XALATAN [Suspect]
     Indication: OPEN ANGLE GLAUCOMA
  2. PAMIDRONATE DISODIUM [Suspect]
     Indication: OSTEOPOROSIS

REACTIONS (3)
  - GLAUCOMA [None]
  - IRIDOCYCLITIS [None]
  - MALAISE [None]
